FAERS Safety Report 20573560 (Version 1)
Quarter: 2022Q1

REPORT INFORMATION
  Report Type: Spontaneous
  Country: US (occurrence: None)
  Receive Date: 20220309
  Receipt Date: 20220309
  Transmission Date: 20220423
  Serious: Yes (Disabling)
  Sender: FDA-Public Use
  Company Number: None

PATIENT
  Age: 59 Year
  Sex: Male
  Weight: 90.45 kg

DRUGS (2)
  1. METHYLPREDNISOLONE [Suspect]
     Active Substance: METHYLPREDNISOLONE
     Indication: Eustachian tube dysfunction
     Route: 048
     Dates: end: 20220201
  2. PREDNISONE [Suspect]
     Active Substance: PREDNISONE
     Indication: Eustachian tube dysfunction
     Route: 048
     Dates: end: 20220215

REACTIONS (5)
  - Dry skin [None]
  - Rash macular [None]
  - Erythema [None]
  - Carpal tunnel syndrome [None]
  - Condition aggravated [None]

NARRATIVE: CASE EVENT DATE: 20220127
